FAERS Safety Report 4548785-8 (Version None)
Quarter: 2005Q1

REPORT INFORMATION
  Report Type: 
  Country: None (occurrence: None)
  Receive Date: 20050107
  Receipt Date: 20050107
  Transmission Date: 20050727
  Serious: Yes (Life-Threatening)
  Sender: FDA-Public Use
  Company Number: None

PATIENT
  Age: 40 Year
  Sex: Female
  Weight: 80.7403 kg

DRUGS (2)
  1. VIOXX [Suspect]
     Indication: ARTHRITIS
     Dosage: ONCE DAILY
     Dates: start: 19991015, end: 20030915
  2. VIOXX [Suspect]
     Indication: BACK PAIN
     Dosage: ONCE DAILY
     Dates: start: 19991015, end: 20030915

REACTIONS (1)
  - MYOCARDIAL INFARCTION [None]
